FAERS Safety Report 10561331 (Version 1)
Quarter: 2014Q4

REPORT INFORMATION
  Report Type: Report from Study
  Country: BR (occurrence: BR)
  Receive Date: 20141103
  Receipt Date: 20141103
  Transmission Date: 20150529
  Serious: Yes (Other)
  Sender: FDA-Public Use
  Company Number: PHHY2014BR142967

PATIENT
  Sex: Female
  Weight: 32 kg

DRUGS (5)
  1. CREON [Concomitant]
     Active Substance: PANCRELIPASE AMYLASE\PANCRELIPASE LIPASE\PANCRELIPASE PROTEASE
     Indication: PANCREATIC DISORDER
     Dosage: EVERY TIME SHE FEED, 2500
     Route: 065
     Dates: start: 199906
  2. ZOTEON PODHALER [Suspect]
     Active Substance: TOBRAMYCIN
     Indication: CYSTIC FIBROSIS
     Dosage: ONCE A MONTH
     Route: 055
     Dates: start: 20141022
  3. TOBRAMYCIN. [Suspect]
     Active Substance: TOBRAMYCIN
     Indication: PRODUCT USED FOR UNKNOWN INDICATION
     Dosage: UNK
     Route: 065
  4. CENTRUM [Concomitant]
     Active Substance: VITAMINS
     Indication: VITAMIN SUPPLEMENTATION
     Dosage: ONCE A DAY
     Route: 065
     Dates: start: 2001
  5. NUTRIDRINK [Concomitant]
     Indication: NUTRITIONAL SUPPLEMENTATION
     Dosage: ONCE A DAY
     Route: 065

REACTIONS (6)
  - Device difficult to use [Recovering/Resolving]
  - Dyspnoea [Recovering/Resolving]
  - Choking sensation [Recovering/Resolving]
  - Vomiting [Recovering/Resolving]
  - Incorrect dosage administered [Recovering/Resolving]
  - Choking [Recovering/Resolving]
